FAERS Safety Report 25220537 (Version 1)
Quarter: 2025Q2

REPORT INFORMATION
  Report Type: Spontaneous
  Country: US (occurrence: None)
  Receive Date: 20250418
  Receipt Date: 20250418
  Transmission Date: 20250717
  Serious: Yes (Other)
  Sender: FDA-CTU
  Company Number: None

PATIENT
  Sex: Male

DRUGS (11)
  1. MYCOPHENOLIC ACID [Suspect]
     Active Substance: MYCOPHENOLIC ACID
     Indication: Lung transplant
     Dosage: FREQUENCY : TWICE A DAY;?
     Route: 048
  2. ACYCLOVIR [Concomitant]
     Active Substance: ACYCLOVIR
  3. ALBUTEROL NEB 1.25MG/3 [Concomitant]
  4. ALBUTEROL SULFATE [Concomitant]
     Active Substance: ALBUTEROL SULFATE
  5. BACTRIM OS TAB 800-160 [Concomitant]
  6. ELIQUIS [Concomitant]
     Active Substance: APIXABAN
  7. EVEROLIMUS [Concomitant]
     Active Substance: EVEROLIMUS
  8. FENOFIBRATE TAB 145MG [Concomitant]
  9. FERROUS SULF TAB 325MG [Concomitant]
  10. FLUDROCORT TAB 0.1MG [Concomitant]
  11. FLUTICASONE [Concomitant]
     Active Substance: FLUTICASONE

REACTIONS (1)
  - Neoplasm malignant [None]
